FAERS Safety Report 10057083 (Version 1)
Quarter: 2014Q2

REPORT INFORMATION
  Report Type: Report from Study
  Country: NL (occurrence: NL)
  Receive Date: 20140403
  Receipt Date: 20140403
  Transmission Date: 20141212
  Serious: Yes (Hospitalization, Other)
  Sender: FDA-Public Use
  Company Number: NL-MERCK-1403NLD014104

PATIENT
  Age: 62 Year
  Sex: Male
  Weight: 66 kg

DRUGS (8)
  1. DEXAMETHASONE [Suspect]
     Indication: PLASMA CELL MYELOMA
     Dosage: DAYS 1,4,8,11,12 EVERY 21 DAYS, CYCLICAL
     Route: 048
     Dates: start: 20130701, end: 20130905
  2. STUDY DRUG (UNSPECIFIED) [Suspect]
     Indication: PLASMA CELL MYELOMA
     Dosage: 1,4,8,11 EVERY 21 DAYS, CYCLICAL
     Route: 058
     Dates: start: 20130701, end: 20130905
  3. BORTEZOMIB [Suspect]
     Indication: PLASMA CELL MYELOMA
     Dosage: 1,4,8,11 EVERY 21 DAYS, 2.3 MG/M2, CYCLICAL
     Route: 058
     Dates: start: 20130701, end: 20130905
  4. OXYCONTIN [Concomitant]
     Dosage: UNK
  5. METOCLOPRAMIDE [Concomitant]
     Dosage: UNK
  6. OXYNORM [Concomitant]
     Dosage: UNK
  7. AMITRIPTYLINE HYDROCHLORIDE [Concomitant]
     Dosage: UNK
  8. ACETAMINOPHEN [Concomitant]

REACTIONS (3)
  - Musculoskeletal pain [Not Recovered/Not Resolved]
  - Hypercalcaemia [Unknown]
  - Renal failure [Unknown]
